FAERS Safety Report 8286645-X (Version None)
Quarter: 2012Q2

REPORT INFORMATION
  Report Type: 
  Country: None (occurrence: None)
  Receive Date: 20120416
  Receipt Date: 20120405
  Transmission Date: 20120825
  Serious: Yes (Other)
  Sender: FDA-Public Use
  Company Number: SE-SHIRE-ALL1-2012-00860

PATIENT
  Sex: Male
  Weight: 21 kg

DRUGS (4)
  1. ELAPRASE [Suspect]
     Indication: MUCOPOLYSACCHARIDOSIS II
     Dosage: 2 INFUSIONS OF 1OR 2 VIALS, 1X/WEEK
     Route: 041
     Dates: start: 20121225
  2. ANTIHISTAMINES [Concomitant]
     Indication: PREMEDICATION
  3. EBASTINE [Concomitant]
     Indication: PRODUCT USED FOR UNKNOWN INDICATION
     Dosage: 2.5 MG, UNKNOWN
     Route: 048
  4. SOLU-CORTEF [Concomitant]
     Indication: PREMEDICATION
     Dosage: 50 MG( BEFORE INT.), UNKNOWN
     Route: 041

REACTIONS (5)
  - THROAT IRRITATION [None]
  - RASH [None]
  - URTICARIA [None]
  - INFUSION RELATED REACTION [None]
  - DYSPNOEA [None]
